FAERS Safety Report 14940982 (Version 2)
Quarter: 2018Q2

REPORT INFORMATION
  Report Type: Spontaneous
  Country: US (occurrence: US)
  Receive Date: 20180525
  Receipt Date: 20180607
  Transmission Date: 20180711
  Serious: Yes (Other)
  Sender: FDA-Public Use
  Company Number: US-TEVA-2018-US-897147

PATIENT
  Sex: Female

DRUGS (2)
  1. ACTIQ [Suspect]
     Active Substance: FENTANYL CITRATE
     Indication: PAIN
     Route: 065
  2. ADCETRIS [Concomitant]
     Active Substance: BRENTUXIMAB VEDOTIN

REACTIONS (4)
  - Neoplasm malignant [Unknown]
  - Pain in extremity [Unknown]
  - Multiple sclerosis [Unknown]
  - Neuropathy peripheral [Unknown]
